FAERS Safety Report 6609449-X (Version None)
Quarter: 2010Q1

REPORT INFORMATION
  Report Type: 
  Country: None (occurrence: None)
  Receive Date: 20100302
  Receipt Date: 20100219
  Transmission Date: 20100710
  Serious: No
  Sender: FDA-Public Use
  Company Number: US-B.I. PHARMACEUTICALS,INC./RIDGEFIELD-2010-BP-02038BP

PATIENT
  Sex: Male

DRUGS (2)
  1. RANITIDINE [Suspect]
     Dosage: 300 MG
     Route: 048
     Dates: start: 20100101, end: 20100201
  2. KAPIDEX [Suspect]
     Dates: start: 20100101

REACTIONS (2)
  - BURNING SENSATION [None]
  - TREMOR [None]
